FAERS Safety Report 10160855 (Version 1)
Quarter: 2014Q2

REPORT INFORMATION
  Report Type: Spontaneous
  Country: US (occurrence: US)
  Receive Date: 20140508
  Receipt Date: 20140508
  Transmission Date: 20141212
  Serious: Yes (Hospitalization, Other)
  Sender: FDA-Public Use
  Company Number: US-B.I. PHARMACEUTICALS,INC./RIDGEFIELD-2014-BI-20132BP

PATIENT
  Age: 71 Year
  Sex: Male

DRUGS (5)
  1. SPIRIVA [Suspect]
     Indication: PRODUCT USED FOR UNKNOWN INDICATION
     Route: 048
  2. REVLIMID [Suspect]
     Indication: PLASMA CELL MYELOMA
     Dosage: 10 MG
     Route: 048
     Dates: start: 201203
  3. REVLIMID [Suspect]
     Dosage: 18.75 MG
     Route: 048
     Dates: start: 20140131, end: 20140218
  4. REVLIMID [Suspect]
     Dosage: 18.75 MG
     Route: 048
     Dates: start: 20140312
  5. REVLIMID [Suspect]
     Dosage: 12.5 MG
     Route: 048
     Dates: start: 201403

REACTIONS (5)
  - Emphysema [Not Recovered/Not Resolved]
  - Dyspnoea [Unknown]
  - Arrhythmia [Not Recovered/Not Resolved]
  - Atrioventricular block [Unknown]
  - Abdominal distension [Unknown]
